FAERS Safety Report 10411657 (Version 2)
Quarter: 2016Q3

REPORT INFORMATION
  Report Type: Spontaneous
  Country: MX (occurrence: MX)
  Receive Date: 20140827
  Receipt Date: 20160729
  Transmission Date: 20161109
  Serious: Yes (Other)
  Sender: FDA-Public Use
  Company Number: MX-BRISTOL-MYERS SQUIBB COMPANY-21333489

PATIENT
  Age: 61 Year
  Sex: Female

DRUGS (5)
  1. SITAGLIPTIN PHOSPHATE [Suspect]
     Active Substance: SITAGLIPTIN PHOSPHATE
     Indication: TYPE 2 DIABETES MELLITUS
     Dosage: TABS
     Route: 065
  2. PENTOXIFYLLINE. [Suspect]
     Active Substance: PENTOXIFYLLINE
     Indication: DIZZINESS
     Route: 065
  3. AMOXICILLIN+CLAVULANIC ACID [Suspect]
     Active Substance: AMOXICILLIN\CLAVULANIC ACID
     Indication: SINUSITIS
  4. METFORMIN HYDROCHLORIDE. [Suspect]
     Active Substance: METFORMIN HYDROCHLORIDE
     Indication: TYPE 2 DIABETES MELLITUS
     Dosage: MORE THAN OR EQUAL TO 1500MG PER DAY
     Route: 065
  5. AMOXICILLIN+CLAVULANIC ACID [Suspect]
     Active Substance: AMOXICILLIN\CLAVULANIC ACID
     Indication: DIZZINESS
     Route: 065

REACTIONS (1)
  - Thrombocytopenia [Recovered/Resolved]
